FAERS Safety Report 4968196-0 (Version None)
Quarter: 2006Q2

REPORT INFORMATION
  Report Type: 
  Country: None (occurrence: None)
  Receive Date: 20060405
  Receipt Date: 20060329
  Transmission Date: 20061013
  Serious: Yes (Hospitalization)
  Sender: FDA-Public Use
  Company Number: CIMD20060001

PATIENT
  Age: 75 Year
  Sex: Male

DRUGS (5)
  1. CIMETIDINE [Suspect]
     Indication: GASTROINTESTINAL DISORDER
     Dosage: 800 MG /DAY PO
     Route: 048
     Dates: start: 20001101, end: 20011213
  2. LOXOPROFEN SODIUM [Concomitant]
  3. RABEPRAZOLE SODIUM [Concomitant]
  4. FAMOTIDINE [Concomitant]
  5. ACETAMINOPHEN [Concomitant]

REACTIONS (15)
  - ANTINEUTROPHIL CYTOPLASMIC ANTIBODY INCREASED [None]
  - BLOOD ALKALINE PHOSPHATASE INCREASED [None]
  - BLOOD IMMUNOGLOBULIN E INCREASED [None]
  - BLOOD IMMUNOGLOBULIN G INCREASED [None]
  - COMPLEMENT FACTOR DECREASED [None]
  - HYPERTENSION [None]
  - KIDNEY FIBROSIS [None]
  - LYMPHOCYTE STIMULATION TEST POSITIVE [None]
  - PYREXIA [None]
  - RASH PRURITIC [None]
  - RENAL FAILURE [None]
  - RENAL IMPAIRMENT [None]
  - RENAL TUBULAR ATROPHY [None]
  - STREPTOCOCCAL SEROLOGY POSITIVE [None]
  - TUBULOINTERSTITIAL NEPHRITIS [None]
